FAERS Safety Report 17943319 (Version 1)
Quarter: 2020Q2

REPORT INFORMATION
  Report Type: Spontaneous
  Country: US (occurrence: US)
  Receive Date: 20200625
  Receipt Date: 20200625
  Transmission Date: 20200714
  Serious: No
  Sender: FDA-Public Use
  Company Number: US-PFIZER INC-2020245453

PATIENT
  Age: 41 Year
  Sex: Male
  Weight: 100.06 kg

DRUGS (2)
  1. NEURONTIN [Suspect]
     Active Substance: GABAPENTIN
     Dosage: UNK
  2. BARBITAL [Suspect]
     Active Substance: BARBITAL
     Dosage: UNK

REACTIONS (1)
  - Drug ineffective [Unknown]
